FAERS Safety Report 5393234-3 (Version None)
Quarter: 2007Q3

REPORT INFORMATION
  Report Type: 
  Country: None (occurrence: None)
  Receive Date: 20070718
  Receipt Date: 20060612
  Transmission Date: 20080115
  Serious: Yes (Hospitalization, Other)
  Sender: FDA-Public Use
  Company Number: 2006074955

PATIENT
  Age: 39 Year
  Sex: Male
  Weight: 79.3795 kg

DRUGS (1)
  1. CELEBREX [Suspect]
     Indication: ROAD TRAFFIC ACCIDENT
     Dosage: (200 MG)
     Dates: start: 20001017

REACTIONS (1)
  - MYOCARDIAL INFARCTION [None]
